FAERS Safety Report 24670167 (Version 2)
Quarter: 2024Q4

REPORT INFORMATION
  Report Type: Spontaneous
  Country: TR (occurrence: TR)
  Receive Date: 20241127
  Receipt Date: 20241209
  Transmission Date: 20250114
  Serious: Yes (Other)
  Sender: ASTELLAS
  Company Number: TR-ASTELLAS-2024-AER-020549

PATIENT
  Age: 70 Year
  Sex: Female

DRUGS (4)
  1. PADCEV [Suspect]
     Active Substance: ENFORTUMAB VEDOTIN\ENFORTUMAB VEDOTIN-EJFV
     Indication: Bladder cancer stage IV
     Dosage: 1.25
     Route: 065
     Dates: start: 20240501, end: 20240808
  2. VALSARTAN [Concomitant]
     Active Substance: VALSARTAN
     Indication: Hypertension
     Route: 065
  3. METOPROLOL [Concomitant]
     Active Substance: METOPROLOL
     Indication: Hypertension
     Route: 065
  4. PEMBROLIZUMAB [Concomitant]
     Active Substance: PEMBROLIZUMAB
     Indication: Product used for unknown indication
     Route: 065

REACTIONS (3)
  - Malignant neoplasm progression [Recovered/Resolved]
  - Fatigue [Unknown]
  - Skin toxicity [Recovered/Resolved]

NARRATIVE: CASE EVENT DATE: 20240501
